FAERS Safety Report 11257887 (Version 1)
Quarter: 2015Q3

REPORT INFORMATION
  Report Type: Spontaneous
  Country: BR (occurrence: BR)
  Receive Date: 20150710
  Receipt Date: 20150710
  Transmission Date: 20151125
  Serious: Yes (Death, Other)
  Sender: FDA-Public Use
  Company Number: BR-JNJFOC-20150700758

PATIENT
  Age: 69 Year
  Sex: Male

DRUGS (9)
  1. PREDNISONE. [Suspect]
     Active Substance: PREDNISONE
     Indication: PROSTATE CANCER
     Route: 065
     Dates: start: 201201
  2. HYDROCHLOROTHIAZIDE. [Concomitant]
     Active Substance: HYDROCHLOROTHIAZIDE
     Indication: HYPERTENSION
     Route: 065
  3. DIETHYLSTILBESTROL [Suspect]
     Active Substance: DIETHYLSTILBESTROL
     Indication: PROSTATE CANCER
     Route: 048
  4. ENALAPRIL [Concomitant]
     Active Substance: ENALAPRIL
     Indication: HYPERTENSION
     Route: 065
  5. OLCADIL [Concomitant]
     Active Substance: CLOXAZOLAM
     Indication: HYPERTENSION
     Route: 065
  6. FRAXIPARIN [Suspect]
     Active Substance: NADROPARIN CALCIUM
     Indication: PROSTATE CANCER
     Route: 065
     Dates: start: 201310
  7. MITOXANTRONE [Suspect]
     Active Substance: MITOXANTRONE HYDROCHLORIDE
     Indication: PROSTATE CANCER
     Route: 042
     Dates: start: 201409
  8. ESTROGEN [Suspect]
     Active Substance: ESTRONE\SUS SCROFA OVARY
     Indication: PROSTATE CANCER
     Route: 065
  9. ZYTIGA [Suspect]
     Active Substance: ABIRATERONE ACETATE
     Indication: PROSTATE CANCER
     Route: 048
     Dates: start: 201201

REACTIONS (6)
  - Skin atrophy [Unknown]
  - Cerebrovascular accident [Fatal]
  - Respiratory disorder [Fatal]
  - Prostate cancer metastatic [Unknown]
  - Generalised oedema [Unknown]
  - Lower urinary tract symptoms [Unknown]
